FAERS Safety Report 18319132 (Version 1)
Quarter: 2020Q3

REPORT INFORMATION
  Report Type: Spontaneous
  Country: US (occurrence: US)
  Receive Date: 20200928
  Receipt Date: 20200928
  Transmission Date: 20201103
  Serious: Yes (Hospitalization)
  Sender: FDA-Public Use
  Company Number: None

PATIENT
  Age: 78 Year
  Sex: Male
  Weight: 52.2 kg

DRUGS (10)
  1. VOTRIENT [Suspect]
     Active Substance: PAZOPANIB HYDROCHLORIDE
     Indication: RENAL CANCER
     Route: 048
     Dates: start: 20200831, end: 20200928
  2. OXYBUTYNIN CHLORIDE 5MG [Concomitant]
  3. ONDANSETRON 4MG [Concomitant]
     Active Substance: ONDANSETRON
  4. TAMSULOSIN 0.4MG [Concomitant]
     Active Substance: TAMSULOSIN
  5. GLUCOSAMINE CHONDROITIN COMPLEX [Concomitant]
     Active Substance: CHONDROITIN SULFATE (BOVINE)\GLUCOSAMINE HYDROCHLORIDE
  6. PROCHLORPERAZINE 5MG [Concomitant]
  7. COLACE [Concomitant]
     Active Substance: DOCUSATE SODIUM
  8. VITAMIN B?12 ER 1000MCG [Concomitant]
  9. FEROSUL 325MG [Concomitant]
  10. CENTRUM MEN [Concomitant]
     Active Substance: MINERALS\VITAMINS

REACTIONS (1)
  - Hospice care [None]

NARRATIVE: CASE EVENT DATE: 20200928
